FAERS Safety Report 12174004 (Version 1)
Quarter: 2016Q1

REPORT INFORMATION
  Report Type: Spontaneous
  Country: US (occurrence: None)
  Receive Date: 20160311
  Receipt Date: 20160311
  Transmission Date: 20160526
  Serious: Yes (Hospitalization)
  Sender: FDA-Public Use
  Company Number: None

PATIENT
  Age: 58 Year
  Sex: Female
  Weight: 72.58 kg

DRUGS (6)
  1. LEVOXYL [Concomitant]
     Active Substance: LEVOTHYROXINE SODIUM
  2. ZYRTEC [Concomitant]
     Active Substance: CETIRIZINE HYDROCHLORIDE
  3. LOW DOSE ASPIRIN [Concomitant]
     Active Substance: ASPIRIN
  4. ANASTROZOLE. [Suspect]
     Active Substance: ANASTROZOLE
     Indication: PROPHYLAXIS
     Dosage: 1 TABLET?ONCE DAILY?TAKEN BY MOUTH
     Route: 048
     Dates: start: 20160205, end: 20160226
  5. VEGGIE/PRO-BIOTIC POWDER [Concomitant]
  6. ANASTROZOLE. [Suspect]
     Active Substance: ANASTROZOLE
     Indication: DISEASE RECURRENCE
     Dosage: 1 TABLET?ONCE DAILY?TAKEN BY MOUTH
     Route: 048
     Dates: start: 20160205, end: 20160226

REACTIONS (11)
  - Dyspnoea [None]
  - Liver disorder [None]
  - Pancreatitis [None]
  - Abdominal pain upper [None]
  - Presyncope [None]
  - Blood pressure decreased [None]
  - Blood calcium increased [None]
  - Vomiting [None]
  - Body temperature decreased [None]
  - Dehydration [None]
  - Hyperhidrosis [None]

NARRATIVE: CASE EVENT DATE: 20160307
